FAERS Safety Report 8937078 (Version 2)
Quarter: 2012Q4

REPORT INFORMATION
  Report Type: 
  Country: CO (occurrence: CO)
  Receive Date: 20121129
  Receipt Date: 20121213
  Transmission Date: 20130627
  Serious: Yes (Other)
  Sender: FDA-Public Use
  Company Number: CO-009507513-1211COL011743

PATIENT
  Age: 55 Year
  Sex: Male

DRUGS (4)
  1. PEG-INTRON [Suspect]
     Dosage: UNK UNK, qw
     Dates: start: 20120424
  2. PEG-INTRON [Suspect]
     Dosage: 100 Microgram, UNK
  3. VICTRELIS [Suspect]
     Dosage: 2400 mg, per day
     Route: 048
     Dates: start: 20120522
  4. RIBAVIRIN [Suspect]
     Dosage: 1200 mg per day
     Route: 048

REACTIONS (2)
  - Leukopenia [Not Recovered/Not Resolved]
  - Thrombocytopenia [Not Recovered/Not Resolved]
